FAERS Safety Report 7381603-1 (Version None)
Quarter: 2011Q1

REPORT INFORMATION
  Report Type: 
  Country: None (occurrence: None)
  Receive Date: 20110329
  Receipt Date: 20110316
  Transmission Date: 20110831
  Serious: Yes (Hospitalization)
  Sender: FDA-Public Use
  Company Number: PHHY2011US22249

PATIENT
  Age: 29 Year
  Sex: Female
  Weight: 73 kg

DRUGS (5)
  1. PREDNISOLONE [Concomitant]
     Indication: PROPHYLAXIS AGAINST TRANSPLANT REJECTION
     Dosage: 5 MG
     Dates: start: 20090528
  2. PREDNISOLONE [Concomitant]
     Dosage: 10 MG, QD
     Dates: start: 20110112
  3. MYFORTIC [Suspect]
     Indication: RENAL TRANSPLANT
     Dosage: 720 MG, QD
     Route: 048
     Dates: start: 20110115
  4. TACROLIMUS [Concomitant]
     Dates: start: 20100309
  5. PREDNISOLONE [Concomitant]
     Dosage: 500 MG, QD
     Dates: start: 20110112

REACTIONS (1)
  - GLOMERULOSCLEROSIS [None]
